FAERS Safety Report 4889612-9 (Version None)
Quarter: 2006Q1

REPORT INFORMATION
  Report Type: 
  Country: None (occurrence: None)
  Receive Date: 20060124
  Receipt Date: 20051220
  Transmission Date: 20060701
  Serious: Yes (Other)
  Sender: FDA-Public Use
  Company Number: US-GLAXOSMITHKLINE-A0586470A

PATIENT
  Age: 30 Year
  Sex: Male

DRUGS (5)
  1. EPIVIR [Suspect]
     Indication: HIV INFECTION
     Route: 048
  2. VIREAD [Concomitant]
  3. REYATAZ [Concomitant]
  4. NORVIR [Concomitant]
  5. DIABETES MEDICATION [Concomitant]

REACTIONS (4)
  - ABASIA [None]
  - CEREBROVASCULAR ACCIDENT [None]
  - NERVE INJURY [None]
  - NEUROPATHY [None]
